FAERS Safety Report 6082769-6 (Version None)
Quarter: 2009Q1

REPORT INFORMATION
  Report Type: 
  Country: None (occurrence: None)
  Receive Date: 20090218
  Receipt Date: 20090211
  Transmission Date: 20090719
  Serious: Yes (Other)
  Sender: FDA-Public Use
  Company Number: US-JNJCH-2009004055

PATIENT
  Age: 32 Year
  Sex: Female
  Weight: 81.6 kg

DRUGS (1)
  1. LUBRIDERM DAILY MOISTURE [Suspect]
     Indication: DRY SKIN
     Dosage: TEXT:A LITTLE ONCE
     Route: 061
     Dates: start: 20090210, end: 20090210

REACTIONS (2)
  - APPLICATION SITE BURN [None]
  - SWELLING FACE [None]
